FAERS Safety Report 21701338 (Version 1)
Quarter: 2022Q4

REPORT INFORMATION
  Report Type: Report from Study
  Country: US (occurrence: US)
  Receive Date: 20221208
  Receipt Date: 20221208
  Transmission Date: 20230113
  Serious: Yes (Other)
  Sender: FDA-Public Use
  Company Number: US-ABBVIE-4189470

PATIENT
  Sex: Male

DRUGS (2)
  1. SKYRIZI [Suspect]
     Active Substance: RISANKIZUMAB-RZAA
     Indication: Psoriasis
     Route: 058
  2. MODERNA COVID-19 VACCINE [Concomitant]
     Active Substance: ELASOMERAN
     Indication: COVID-19 immunisation
     Route: 030

REACTIONS (6)
  - Blindness [Recovering/Resolving]
  - Subcutaneous abscess [Unknown]
  - Psoriasis [Not Recovered/Not Resolved]
  - Staphylococcus test positive [Recovering/Resolving]
  - Cataract traumatic [Unknown]
  - Furuncle [Unknown]

NARRATIVE: CASE EVENT DATE: 20200101
